FAERS Safety Report 8947939 (Version 2)
Quarter: 2013Q1

REPORT INFORMATION
  Report Type: Spontaneous
  Country: US (occurrence: None)
  Receive Date: 20121127
  Receipt Date: 20121217
  Transmission Date: 20140127
  Serious: Yes (Hospitalization, Other)
  Sender: FDA-Public Use
  Company Number: AUR-APL-2012-04985

PATIENT
  Age: 74 Year
  Sex: Female

DRUGS (4)
  1. LISINOPRIL (LISINOPRIL) [Suspect]
     Indication: HYPERTENSION
  2. ATENOLOL (ATENOLOL) [Suspect]
     Indication: HYPERTENSION
  3. HYDROCHLOROTHIAZIDE (HYDROCHLOROTHIAZIDE) [Suspect]
     Indication: HYPERTENSION
  4. ALTEPLASE [Suspect]
     Indication: ISCHAEMIC STROKE
     Dosage: 10 % BOLUS (90 MG, TOTAL), INTRAVENOUS

REACTIONS (6)
  - Urticaria [None]
  - Cerebral infarction [None]
  - Angioedema [None]
  - Hemianopia homonymous [None]
  - Hemiplegia [None]
  - Nervous system disorder [None]
